FAERS Safety Report 7455191-5 (Version None)
Quarter: 2011Q2

REPORT INFORMATION
  Report Type: 
  Country: None (occurrence: None)
  Receive Date: 20110503
  Receipt Date: 20110418
  Transmission Date: 20111010
  Serious: Yes (Other)
  Sender: FDA-Public Use
  Company Number: PHHY2011US32728

PATIENT
  Sex: Female

DRUGS (8)
  1. LIPITOR [Concomitant]
  2. NASONEX [Concomitant]
  3. RECLAST [Suspect]
     Dosage: 5 MG, UNK
     Route: 042
     Dates: start: 20110414
  4. TRIAMTERENE AND HYDROCHLOROTHIAZIDE [Concomitant]
  5. ASPIRIN [Concomitant]
  6. DILTIAZEM [Concomitant]
     Dosage: 180 MG, BID
  7. ALLEGRA D 24 HOUR [Concomitant]
  8. HYDROCODONE BITARTRATE [Concomitant]

REACTIONS (11)
  - PYREXIA [None]
  - BONE SWELLING [None]
  - OEDEMA PERIPHERAL [None]
  - ERYTHEMA [None]
  - JOINT SWELLING [None]
  - INFLUENZA LIKE ILLNESS [None]
  - BONE PAIN [None]
  - PAIN [None]
  - HYPOAESTHESIA [None]
  - PANIC ATTACK [None]
  - GAIT DISTURBANCE [None]
